FAERS Safety Report 12744249 (Version 1)
Quarter: 2016Q3

REPORT INFORMATION
  Report Type: Not Available
  Country: FI (occurrence: FI)
  Receive Date: 20160914
  Receipt Date: 20160914
  Transmission Date: 20161109
  Serious: Yes (Hospitalization, Other)
  Sender: FDA-Public Use
  Company Number: FI-AKORN-39225

PATIENT
  Age: 44 Year
  Sex: Female

DRUGS (1)
  1. ACYCLOVIR ORAL SUSPENSION [Suspect]
     Active Substance: ACYCLOVIR

REACTIONS (5)
  - Acute generalised exanthematous pustulosis [None]
  - Pyrexia [None]
  - Oral herpes [None]
  - Leukocytosis [None]
  - Erythema [None]
